FAERS Safety Report 9455546 (Version 3)
Quarter: 2013Q4

REPORT INFORMATION
  Report Type: Spontaneous
  Country: AR (occurrence: AR)
  Receive Date: 20130813
  Receipt Date: 20131218
  Transmission Date: 20140711
  Serious: Yes (Other)
  Sender: FDA-Public Use
  Company Number: AR-PFIZER INC-2013232892

PATIENT
  Age: 50 Year
  Sex: Male

DRUGS (3)
  1. RAPAMUNE [Suspect]
     Indication: RENAL TRANSPLANT
     Dosage: 0.5 MG, 1X/DAY
     Dates: start: 20090601
  2. OMEPRAZOL [Concomitant]
  3. LOSARTAN [Concomitant]

REACTIONS (3)
  - Hepatic neoplasm [Recovered/Resolved]
  - Dizziness [Not Recovered/Not Resolved]
  - Fatigue [Not Recovered/Not Resolved]
